FAERS Safety Report 9988808 (Version 1)
Quarter: 2013Q4

REPORT INFORMATION
  Report Type: Spontaneous
  Country: IN (occurrence: None)
  Receive Date: 20131021
  Receipt Date: 20131021
  Transmission Date: 20140711
  Serious: Yes (Hospitalization, Other)
  Sender: FDA-Public Use
  Company Number: VAL_02774_2013

PATIENT
  Sex: Female

DRUGS (2)
  1. METOPROLOL [Suspect]
     Indication: BLOOD PRESSURE INADEQUATELY CONTROLLED
     Dosage: (1.5 MG (IV) TRANSPLACETAL)
     Route: 064
  2. NITROGLYCERIN [Suspect]
     Indication: BLOOD PRESSURE INADEQUATELY CONTROLLED
     Dosage: (TOTAL DOSE 60 UG IN INCREMENTAL DOSES (IV) TRANSPLACENTAL)
     Route: 064

REACTIONS (3)
  - Caesarean section [None]
  - Exposure during pregnancy [None]
  - Premature baby [None]
